FAERS Safety Report 16980437 (Version 1)
Quarter: 2019Q4

REPORT INFORMATION
  Report Type: Spontaneous
  Country: US (occurrence: US)
  Receive Date: 20191031
  Receipt Date: 20191031
  Transmission Date: 20200122
  Serious: Yes (Hospitalization)
  Sender: FDA-Public Use
  Company Number: US-AMNEAL PHARMACEUTICALS-2019-AMRX-02382

PATIENT
  Age: 46 Year
  Sex: Female
  Weight: 77 kg

DRUGS (2)
  1. ELAGOLIX [Suspect]
     Active Substance: ELAGOLIX
     Indication: MENORRHAGIA
     Dosage: 300 MILLIGRAM, 2 DOSAGE FORM, 1 /DAY
     Route: 048
     Dates: start: 20160726
  2. ACTIVELLA [Suspect]
     Active Substance: ESTRADIOL\NORETHINDRONE ACETATE
     Indication: MENORRHAGIA
     Dosage: 2 DOSAGE FORM, 1 /DAY
     Route: 048
     Dates: start: 20160726

REACTIONS (2)
  - Product use in unapproved indication [Unknown]
  - Dermatitis [Recovered/Resolved]

NARRATIVE: CASE EVENT DATE: 20160726
